FAERS Safety Report 17785700 (Version 2)
Quarter: 2020Q3

REPORT INFORMATION
  Report Type: Spontaneous
  Country: GB (occurrence: GB)
  Receive Date: 20200514
  Receipt Date: 20200720
  Transmission Date: 20201102
  Serious: Yes (Other)
  Sender: FDA-Public Use
  Company Number: GB-VERTEX PHARMACEUTICALS-2020-010559

PATIENT
  Age: 41 Year
  Sex: Female

DRUGS (20)
  1. VITAMIN E [Concomitant]
     Active Substance: .ALPHA.-TOCOPHEROL
     Dosage: 200 UNITS
  2. FEXOFENADINE [Concomitant]
     Active Substance: FEXOFENADINE HYDROCHLORIDE
     Dosage: SUMMER MONTHS
  3. FLIXONASE NASAL [Concomitant]
     Active Substance: FLUTICASONE PROPIONATE
  4. SALBUTAMOL [Concomitant]
     Active Substance: ALBUTEROL
     Dosage: PRN
  5. SLOW SODIUM [Concomitant]
     Dosage: SUMMER MONTHS AND IN HOT WEATHER, PRN
  6. SYMKEVI [Suspect]
     Active Substance: IVACAFTOR\TEZACAFTOR
     Indication: CYSTIC FIBROSIS
     Dosage: 100 MG TEZACAFTOR/ 150 MG IVACAFTOR AM
     Route: 048
     Dates: start: 201912
  7. SODIUM CHLORIDE. [Concomitant]
     Active Substance: SODIUM CHLORIDE
     Dosage: UNK UNK, QD
  8. OMEPRAZOLE. [Concomitant]
     Active Substance: OMEPRAZOLE
     Dosage: USING MORE RECENTLY ? USUALLY TAKES FOR 3 DAYS AT A TIME WHICH IS SUFFICIENT, PRN
  9. PSEUDOEPHEDRINE. [Concomitant]
     Active Substance: PSEUDOEPHEDRINE HYDROCHLORIDE
     Dosage: PRN
  10. ZOLEDRONIC ACID. [Concomitant]
     Active Substance: ZOLEDRONIC ACID
     Dosage: YEARLY
  11. CITALOPRAM [Concomitant]
     Active Substance: CITALOPRAM HYDROBROMIDE
  12. AZITHROMYCIN ANHYDROUS. [Concomitant]
     Active Substance: AZITHROMYCIN ANHYDROUS
  13. DORNASE ALFA. [Concomitant]
     Active Substance: DORNASE ALFA
     Dosage: 2.5 MG PRN, QD
  14. VITAMIN K [PHYTOMENADIONE] [Concomitant]
  15. KALYDECO [Suspect]
     Active Substance: IVACAFTOR
     Indication: CYSTIC FIBROSIS
     Dosage: ONCE PER DAY, PM
     Route: 048
     Dates: start: 201912
  16. COLOBREATHE [Concomitant]
     Active Substance: COLISTIMETHATE SODIUM
     Dosage: 1.66MU, BID
  17. MANNITOL. [Concomitant]
     Active Substance: MANNITOL
     Dosage: RARELY USES AS SHE FINDS IF DIFFICULT, MAKES HER COUGH
  18. CLENIL [BECLOMETASONE DIPROPIONATE] [Concomitant]
     Dosage: UNK, BID
  19. VITAMIN A + D [Concomitant]
     Active Substance: ERGOCALCIFEROL\RETINOL
  20. ADCAL D3 [Concomitant]
     Active Substance: CALCIUM CARBONATE\CHOLECALCIFEROL
     Dosage: UNK, BID

REACTIONS (3)
  - Benign breast neoplasm [Recovered/Resolved]
  - Weight increased [Unknown]
  - Depression [Recovering/Resolving]

NARRATIVE: CASE EVENT DATE: 201912
